FAERS Safety Report 4950726-6 (Version None)
Quarter: 2006Q1

REPORT INFORMATION
  Report Type: 
  Country: None (occurrence: None)
  Receive Date: 20060321
  Receipt Date: 20060321
  Transmission Date: 20060701
  Serious: No
  Sender: FDA-Public Use
  Company Number: None

PATIENT
  Age: 17 Year
  Sex: Female
  Weight: 86 kg

DRUGS (1)
  1. ACETADOTE [Suspect]
     Indication: OVERDOSE
     Dosage: 8.6 G IV ONE TIME
     Route: 042
     Dates: start: 20040831

REACTIONS (4)
  - DYSPNOEA [None]
  - NAUSEA [None]
  - PRURITUS GENERALISED [None]
  - SWELLING FACE [None]
